FAERS Safety Report 5268192-2 (Version None)
Quarter: 2007Q1

REPORT INFORMATION
  Report Type: 
  Country: None (occurrence: None)
  Receive Date: 20070314
  Receipt Date: 20070314
  Transmission Date: 20070707
  Serious: Yes (Hospitalization)
  Sender: FDA-Public Use
  Company Number: None

PATIENT
  Age: 67 Year
  Sex: Male
  Weight: 101 kg

DRUGS (1)
  1. GLEEVEC [Suspect]
     Indication: WALDENSTROM'S MACROGLOBULINAEMIA
     Dosage: 600 MG PO
     Route: 048
     Dates: start: 20061222, end: 20070227

REACTIONS (9)
  - ANAEMIA [None]
  - CARDIOMEGALY [None]
  - DYSPNOEA [None]
  - PLATELET COUNT DECREASED [None]
  - PNEUMONIA [None]
  - PULMONARY VASCULAR DISORDER [None]
  - PYREXIA [None]
  - SUPRAVENTRICULAR EXTRASYSTOLES [None]
  - VENTRICULAR HYPERTROPHY [None]
